FAERS Safety Report 23310772 (Version 1)
Quarter: 2023Q4

REPORT INFORMATION
  Report Type: Report from Study
  Country: US (occurrence: US)
  Receive Date: 20231218
  Receipt Date: 20231218
  Transmission Date: 20240109
  Serious: Yes (Hospitalization)
  Sender: FDA-Public Use
  Company Number: US-JNJFOC-20231235107

PATIENT
  Age: 68 Year
  Sex: Male

DRUGS (5)
  1. SPRAVATO [Suspect]
     Active Substance: ESKETAMINE
     Indication: Depression
     Dosage: 56 MG, 4 TOTAL DOSES
     Dates: start: 20230130, end: 20230208
  2. SPRAVATO [Suspect]
     Active Substance: ESKETAMINE
     Dosage: 28 MG, 15 TOTAL DOSES
     Dates: start: 20230213, end: 20230612
  3. SPRAVATO [Suspect]
     Active Substance: ESKETAMINE
     Dosage: 56 MG, 9 TOTAL DOSES
     Dates: start: 20230614, end: 20230918
  4. SPRAVATO [Suspect]
     Active Substance: ESKETAMINE
     Dosage: 28 MG, 1 TOTAL DOSES
     Dates: start: 20231023, end: 20231023
  5. SPRAVATO [Suspect]
     Active Substance: ESKETAMINE
     Dosage: 28 MG, 1 TOTAL DOSES
     Dates: start: 20231111, end: 20231111

REACTIONS (1)
  - Hospitalisation [Unknown]

NARRATIVE: CASE EVENT DATE: 20231208
